FAERS Safety Report 18862190 (Version 2)
Quarter: 2021Q3

REPORT INFORMATION
  Report Type: Spontaneous
  Country: US (occurrence: US)
  Receive Date: 20210208
  Receipt Date: 20210907
  Transmission Date: 20211014
  Serious: No
  Sender: FDA-Public Use
  Company Number: NVSC2021US029085

PATIENT

DRUGS (2)
  1. TASIGNA [Suspect]
     Active Substance: NILOTINIB
     Route: 048
  2. TASIGNA [Suspect]
     Active Substance: NILOTINIB
     Indication: CHRONIC MYELOID LEUKAEMIA
     Dosage: UNK
     Route: 048

REACTIONS (2)
  - Malaise [Unknown]
  - Cardiovascular disorder [Unknown]
